FAERS Safety Report 14285401 (Version 1)
Quarter: 2017Q4

REPORT INFORMATION
  Report Type: Spontaneous
  Country: GB (occurrence: GB)
  Receive Date: 20171214
  Receipt Date: 20171214
  Transmission Date: 20180321
  Serious: Yes (Other)
  Sender: FDA-Public Use
  Company Number: None

PATIENT
  Age: 56 Year
  Sex: Female
  Weight: 44.45 kg

DRUGS (11)
  1. VITAMIN D [Concomitant]
     Active Substance: CHOLECALCIFEROL
  2. VENTOLIN [Concomitant]
     Active Substance: ALBUTEROL SULFATE
  3. ZOPICLONE [Concomitant]
     Active Substance: ZOPICLONE
  4. TRAVATAN [Concomitant]
     Active Substance: TRAVOPROST
  5. EVENING PRIMROSE OIL [Concomitant]
     Active Substance: EVENING PRIMROSE OIL
  6. PREDNISONE. [Suspect]
     Active Substance: PREDNISONE
     Indication: INFLAMMATION
     Dosage: ?          QUANTITY:6 TABLET(S);?
     Route: 048
  7. PROZAC [Concomitant]
     Active Substance: FLUOXETINE HYDROCHLORIDE
  8. ATARAX [Concomitant]
     Active Substance: HYDROXYZINE HYDROCHLORIDE
  9. GLUCOSAMINE + CHONDROITIN WITH ROSE HIP [Concomitant]
  10. BIOTIN [Concomitant]
     Active Substance: BIOTIN
  11. BECOTIDE [Concomitant]
     Active Substance: BECLOMETHASONE DIPROPIONATE

REACTIONS (4)
  - Red man syndrome [None]
  - Withdrawal syndrome [None]
  - Malaise [None]
  - Pruritus [None]

NARRATIVE: CASE EVENT DATE: 20170825
